FAERS Safety Report 4909233-9 (Version None)
Quarter: 2006Q1

REPORT INFORMATION
  Report Type: 
  Country: None (occurrence: None)
  Receive Date: 20060210
  Receipt Date: 20060210
  Transmission Date: 20060701
  Serious: Yes (Hospitalization)
  Sender: FDA-Public Use
  Company Number: None

PATIENT
  Sex: Male
  Weight: 79.3795 kg

DRUGS (14)
  1. PREVACID [Suspect]
     Indication: GASTROOESOPHAGEAL REFLUX DISEASE
     Dosage: 30 MG BID PO
     Route: 048
     Dates: start: 20060109, end: 20060202
  2. PLACEBO [Suspect]
     Indication: GASTROOESOPHAGEAL REFLUX DISEASE
     Dosage: 1 TAB BID PO
     Route: 048
     Dates: start: 20060109, end: 20060202
  3. METROPROLOL [Concomitant]
  4. NIASPAN [Concomitant]
  5. CRESTOR [Concomitant]
  6. COZAAR [Concomitant]
  7. HYDROCHLOROTHIAZIDE [Concomitant]
  8. ASPIRIN [Concomitant]
  9. CLARITIN [Concomitant]
  10. NASONEX [Concomitant]
  11. MULTI-VITAMIN [Concomitant]
  12. ASCORBIC ACID [Concomitant]
  13. GLUCOSAMINE [Concomitant]
  14. GINSENG [Concomitant]

REACTIONS (2)
  - DRUG DOSE OMISSION [None]
  - PNEUMONIA [None]
